FAERS Safety Report 10639843 (Version 1)
Quarter: 2014Q4

REPORT INFORMATION
  Report Type: Spontaneous
  Country: ES (occurrence: ES)
  Receive Date: 20141209
  Receipt Date: 20141209
  Transmission Date: 20150529
  Serious: Yes (Other)
  Sender: FDA-Public Use
  Company Number: ES-009507513-1412ESP000578

PATIENT
  Age: 67 Year
  Sex: Male

DRUGS (1)
  1. INTERFERON ALFA-2B [Suspect]
     Active Substance: INTERFERON ALFA-2B
     Indication: SQUAMOUS CELL CARCINOMA
     Dosage: STRENGTH: 10^6 U/ML;
     Route: 061

REACTIONS (3)
  - Paradoxical drug reaction [Recovered/Resolved]
  - Malignant neoplasm progression [Recovered/Resolved]
  - Malignant neoplasm of conjunctiva [Recovered/Resolved]
